FAERS Safety Report 5358419-0 (Version None)
Quarter: 2007Q2

REPORT INFORMATION
  Report Type: 
  Country: None (occurrence: None)
  Receive Date: 20070530
  Receipt Date: 20061026
  Transmission Date: 20071010
  Serious: Yes (Hospitalization, Other)
  Sender: FDA-Public Use
  Company Number: US200512001496

PATIENT
  Age: 33 Year
  Sex: Female
  Weight: 68 kg

DRUGS (4)
  1. ZYPREXA [Suspect]
     Indication: DEPRESSION
     Dosage: 10 MG
     Dates: start: 20030701, end: 20031201
  2. FLUOXETINE HCL [Concomitant]
  3. SYMBYAX (FLUOXETINE, OLANZAPINE) [Concomitant]
  4. LORAZEPAM [Concomitant]

REACTIONS (6)
  - DIABETES MELLITUS [None]
  - DRUG EXPOSURE DURING PREGNANCY [None]
  - GESTATIONAL DIABETES [None]
  - HYPERTENSION [None]
  - PANCREATITIS [None]
  - WEIGHT INCREASED [None]
